FAERS Safety Report 5647398-4 (Version None)
Quarter: 2008Q1

REPORT INFORMATION
  Report Type: 
  Country: None (occurrence: None)
  Receive Date: 20080229
  Receipt Date: 20080229
  Transmission Date: 20080703
  Serious: Yes (Hospitalization)
  Sender: FDA-Public Use
  Company Number: None

PATIENT
  Age: 69 Year
  Sex: Male
  Weight: 68.0396 kg

DRUGS (7)
  1. GEMCITABINE [Suspect]
     Indication: PANCREATIC CARCINOMA
     Dosage: 1800MG Q WEEK X 3 WKS IV
     Route: 042
     Dates: start: 20071211
  2. GEMCITABINE [Suspect]
     Indication: PANCREATIC CARCINOMA
     Dosage: 1800MG Q WEEK X 3 WKS IV
     Route: 042
     Dates: start: 20071218
  3. GEMCITABINE [Suspect]
     Indication: PANCREATIC CARCINOMA
     Dosage: 1800MG Q WEEK X 3 WKS IV
     Route: 042
     Dates: start: 20080108
  4. GEMCITABINE [Suspect]
     Indication: PANCREATIC CARCINOMA
     Dosage: 1800MG Q WEEK X 3 WKS IV
     Route: 042
     Dates: start: 20080115
  5. GEMCITABINE [Suspect]
     Indication: PANCREATIC CARCINOMA
     Dosage: 1800MG Q WEEK X 3 WKS IV
     Route: 042
     Dates: start: 20080205
  6. GEMCITABINE [Suspect]
     Indication: PANCREATIC CARCINOMA
     Dosage: 1800MG Q WEEK X 3 WKS IV
     Route: 042
     Dates: start: 20080212
  7. LAPATINIB [Suspect]
     Indication: PANCREATIC CARCINOMA
     Dosage: 1500MG DAILY PO
     Route: 048
     Dates: start: 20071211, end: 20080216

REACTIONS (4)
  - ANAEMIA [None]
  - OEDEMA PERIPHERAL [None]
  - PULMONARY OEDEMA [None]
  - THROMBOCYTOPENIA [None]
